FAERS Safety Report 4698290-3 (Version None)
Quarter: 2005Q2

REPORT INFORMATION
  Report Type: 
  Country: None (occurrence: None)
  Receive Date: 20050621
  Receipt Date: 20050609
  Transmission Date: 20051028
  Serious: Yes (Life-Threatening, Hospitalization, Other)
  Sender: FDA-Public Use
  Company Number: 2005007446

PATIENT
  Age: 74 Year
  Sex: Female
  Weight: 65 kg

DRUGS (5)
  1. CELEBREX [Suspect]
     Indication: OSTEOARTHRITIS
     Dosage: 400 MG (200 MG, 2 IN 1 D), ORAL
     Route: 048
     Dates: start: 20031101, end: 20041212
  2. FRACTAL (FLUVASTATIN) [Concomitant]
  3. EVISTA [Concomitant]
  4. FLUVASTATIN (FLUVASTATIN) [Concomitant]
  5. OMEPRAZOLE [Concomitant]

REACTIONS (4)
  - ANGINA UNSTABLE [None]
  - BLOOD CHOLESTEROL INCREASED [None]
  - CORONARY ARTERY STENOSIS [None]
  - LOW DENSITY LIPOPROTEIN INCREASED [None]
